FAERS Safety Report 7168321-X (Version None)
Quarter: 2010Q4

REPORT INFORMATION
  Report Type: 
  Country: None (occurrence: None)
  Receive Date: 20101216
  Receipt Date: 20101208
  Transmission Date: 20110411
  Serious: Yes (Hospitalization)
  Sender: FDA-Public Use
  Company Number: US-US-EMD SERONO, INC.-430010J10USA

PATIENT
  Sex: Male

DRUGS (4)
  1. NOVANTRONE [Suspect]
     Indication: MULTIPLE SCLEROSIS
     Route: 042
     Dates: start: 20090501, end: 20100101
  2. BLOOD PRESSURE MEDICATION [Concomitant]
     Indication: HYPERTENSION
  3. CHOLESTEROL MEDICATION [Concomitant]
     Indication: BLOOD CHOLESTEROL INCREASED
  4. UNSPECIFIED MEDICATIONS [Concomitant]
     Indication: MUSCLE SPASMS

REACTIONS (4)
  - CARDIOVASCULAR DISORDER [None]
  - EXTRAVASATION [None]
  - INJECTION SITE INFECTION [None]
  - MULTIPLE SCLEROSIS RELAPSE [None]
